FAERS Safety Report 21608460 (Version 3)
Quarter: 2023Q2

REPORT INFORMATION
  Report Type: Spontaneous
  Country: US (occurrence: US)
  Receive Date: 20221117
  Receipt Date: 20230503
  Transmission Date: 20230722
  Serious: No
  Sender: FDA-Public Use
  Company Number: US-PFIZER INC-PV202200104958

PATIENT
  Age: 73 Year
  Sex: Female
  Weight: 77.11 kg

DRUGS (2)
  1. IBRANCE [Suspect]
     Active Substance: PALBOCICLIB
     Indication: Liposarcoma recurrent
     Dosage: 125 MG, CYCLIC (3 WEEKS ON/1 WEEK OFF)
     Dates: start: 202204
  2. IBRANCE [Suspect]
     Active Substance: PALBOCICLIB
     Indication: Neoplasm malignant
     Dosage: 100 MG, CYCLIC (EVERY DAY FOR TWO WEEKS ON AND OFF ONE WEEK OFF)
     Route: 048
     Dates: start: 20221124

REACTIONS (4)
  - Full blood count abnormal [Not Recovered/Not Resolved]
  - Stomatitis [Not Recovered/Not Resolved]
  - Night sweats [Not Recovered/Not Resolved]
  - Off label use [Unknown]

NARRATIVE: CASE EVENT DATE: 20221101
